FAERS Safety Report 11125122 (Version 3)
Quarter: 2015Q3

REPORT INFORMATION
  Report Type: Report from Study
  Country: ES (occurrence: ES)
  Receive Date: 20150520
  Receipt Date: 20150709
  Transmission Date: 20151125
  Serious: Yes (Other)
  Sender: FDA-Public Use
  Company Number: ES-MYLANLABS-2015M1016028

PATIENT

DRUGS (13)
  1. METHOTREXATE SODIUM. [Suspect]
     Active Substance: METHOTREXATE SODIUM
     Dosage: 2.5 MG, MORNING MORNINGS AND NIGHTS, AND SUNDAY MORNING
  2. ENBREL [Suspect]
     Active Substance: ETANERCEPT
     Dosage: 50 MG, QW(THURSDAYS)
     Route: 058
     Dates: start: 2015
  3. OMEPRAZOL                          /00661201/ [Concomitant]
     Active Substance: OMEPRAZOLE
     Indication: GASTRIC DISORDER
     Dosage: 40 MG, QD (EVERY 24HOURS (AT NIGHT)
  4. BROMAZEPAM [Concomitant]
     Active Substance: BROMAZEPAM
     Indication: ANXIETY
     Dosage: 1.5 MG, QD (EVERY 24HOURS (AT NIGHT))
  5. METHOTREXATE SODIUM. [Suspect]
     Active Substance: METHOTREXATE SODIUM
     Indication: RHEUMATOID ARTHRITIS
     Dosage: 2.5 MG ON FRIDAY MORNING, FRIDAY NIGHT ANDSATURDAY MORNING;
  6. BROMAZEPAM [Concomitant]
     Active Substance: BROMAZEPAM
     Indication: SLEEP DISORDER
  7. SEREGRA [Concomitant]
     Indication: DEPRESSION
     Dosage: 20 MG, QD (EVERY24HOURS (IN THE MORNING)
  8. DOLOMEDIL [Concomitant]
     Indication: PAIN
     Dosage: 1 DF, QD (EVERY 24HOURS (IN THE AFTERNOON))
  9. ANTIBIOTICS [Concomitant]
     Active Substance: UNSPECIFIED INGREDIENT
     Indication: NASOPHARYNGITIS
     Dosage: UNK
  10. ENANTYUM [Concomitant]
     Active Substance: DEXKETOPROFEN TROMETAMOL
     Indication: ANTIINFLAMMATORY THERAPY
     Dosage: 25 MG (EVERY 12HOURS)
  11. LAVESTRA H [Concomitant]
     Indication: HYPERTENSION
     Dosage: 1 DF, QD (EVERY 24HOURS (IN THE MORNING)
  12. ENBREL [Suspect]
     Active Substance: ETANERCEPT
     Indication: RHEUMATOID ARTHRITIS
     Dosage: 50 MG, QW (WEDNESDAYS)
     Route: 058
     Dates: start: 20150304
  13. TRAMADOL AND ACETAMINOPHEN [Concomitant]
     Active Substance: ACETAMINOPHEN\TRAMADOL HYDROCHLORIDE
     Indication: PAIN
     Dosage: 1 DF, BID (DOSAGE FORM IN THE MORNING AND 1 DOSAGE FORM IN THE AFTERNOON)

REACTIONS (10)
  - Pharyngitis [Not Recovered/Not Resolved]
  - Abdominal discomfort [Unknown]
  - Abdominal pain upper [Unknown]
  - Injection site pain [Unknown]
  - Headache [Unknown]
  - Condition aggravated [Unknown]
  - Injection site pruritus [Unknown]
  - Fall [Unknown]
  - Dizziness [Unknown]
  - Fatigue [Unknown]

NARRATIVE: CASE EVENT DATE: 20150304
